FAERS Safety Report 7555533-6 (Version None)
Quarter: 2011Q2

REPORT INFORMATION
  Report Type: 
  Country: None (occurrence: None)
  Receive Date: 20110617
  Receipt Date: 20030626
  Transmission Date: 20111010
  Serious: Yes (Hospitalization)
  Sender: FDA-Public Use
  Company Number: PHEH2003US04247

PATIENT
  Sex: Male

DRUGS (7)
  1. ATIVAN [Concomitant]
  2. SINEQUAN [Concomitant]
  3. QUININE SULFATE [Concomitant]
  4. INSULIN [Concomitant]
  5. EXELON [Suspect]
     Indication: DEMENTIA ALZHEIMER'S TYPE
     Dosage: 6 MG, BID
     Route: 048
     Dates: start: 20021028
  6. LOPRESSOR [Concomitant]
  7. SYNTHROID [Concomitant]

REACTIONS (3)
  - CAROTID ARTERY OCCLUSION [None]
  - SPINAL FRACTURE [None]
  - BACK PAIN [None]
